FAERS Safety Report 18793492 (Version 4)
Quarter: 2021Q2

REPORT INFORMATION
  Report Type: Spontaneous
  Country: SI (occurrence: SI)
  Receive Date: 20210127
  Receipt Date: 20210504
  Transmission Date: 20210717
  Serious: Yes (Death, Hospitalization, Other)
  Sender: FDA-Public Use
  Company Number: SI-BRISTOL-MYERS SQUIBB COMPANY-BMS-2021-006631

PATIENT
  Age: 47 Year
  Sex: Female

DRUGS (5)
  1. OPDIVO [Suspect]
     Active Substance: NIVOLUMAB
     Indication: CLEAR CELL RENAL CELL CARCINOMA
     Dosage: 3 MILLIGRAM/KILOGRAM; ONLY ONE CYCLE
     Route: 042
     Dates: start: 20200313
  2. YERVOY [Suspect]
     Active Substance: IPILIMUMAB
     Indication: CLEAR CELL RENAL CELL CARCINOMA
     Dosage: 1 MILLIGRAM/KILOGRAM; ONLY ONE CYCLE
     Route: 042
     Dates: start: 20200313
  3. XGEVA [Concomitant]
     Active Substance: DENOSUMAB
     Indication: NEOPLASM
     Dosage: 120 MILLIGRAM
     Route: 058
     Dates: start: 20200129, end: 20200227
  4. DEXAMETHASONE. [Concomitant]
     Active Substance: DEXAMETHASONE
     Indication: NEOPLASM
     Dosage: 4 MILLIGRAM
     Route: 048
     Dates: start: 20200304, end: 20200310
  5. CABOMETYX [Concomitant]
     Active Substance: CABOZANTINIB S-MALATE
     Indication: RENAL CELL CARCINOMA
     Dosage: 40 MILLIGRAM
     Route: 048
     Dates: start: 20200130, end: 20200312

REACTIONS (3)
  - Immune-mediated lung disease [Fatal]
  - Malignant neoplasm progression [Unknown]
  - Pathological fracture [Unknown]

NARRATIVE: CASE EVENT DATE: 20200315
